FAERS Safety Report 16532950 (Version 1)
Quarter: 2019Q3

REPORT INFORMATION
  Report Type: Spontaneous
  Country: US (occurrence: US)
  Receive Date: 20190705
  Receipt Date: 20190705
  Transmission Date: 20191004
  Serious: Yes (Other)
  Sender: FDA-Public Use
  Company Number: US-HIKMA PHARMACEUTICALS USA INC.-US-H14001-19-45921

PATIENT
  Age: 59 Year
  Sex: Male

DRUGS (3)
  1. LIDOCAINE 1 % [Suspect]
     Active Substance: LIDOCAINE
     Indication: NERVE BLOCK
     Route: 065
  2. EPINEPHRINE 1.0 % [Suspect]
     Active Substance: EPINEPHRINE
     Indication: NERVE BLOCK
     Route: 065
  3. BUPIVACAINE 0.5% [Suspect]
     Active Substance: BUPIVACAINE
     Indication: NERVE BLOCK
     Route: 065

REACTIONS (4)
  - Toxicity to various agents [Recovered/Resolved]
  - Oedema [Unknown]
  - Anal sphincter atony [Unknown]
  - Anal incontinence [Recovered/Resolved]
